FAERS Safety Report 8244231-1 (Version None)
Quarter: 2012Q1

REPORT INFORMATION
  Report Type: 
  Country: None (occurrence: None)
  Receive Date: 20120329
  Receipt Date: 20120319
  Transmission Date: 20120608
  Serious: Yes (Death)
  Sender: FDA-Public Use
  Company Number: IL-ACTELION-A-CH2012-62844

PATIENT
  Age: 34 Year
  Sex: Female

DRUGS (5)
  1. WARFARIN SODIUM [Concomitant]
  2. METHOTREXATE [Concomitant]
  3. TRACLEER [Suspect]
     Indication: PULMONARY ARTERIAL HYPERTENSION
     Dosage: UNK
     Route: 048
  4. SILDENAFIL [Concomitant]
  5. GLUCOCORTICOIDS [Concomitant]

REACTIONS (1)
  - DEATH [None]
